FAERS Safety Report 6431590-5 (Version None)
Quarter: 2009Q4

REPORT INFORMATION
  Report Type: 
  Country: None (occurrence: None)
  Receive Date: 20091106
  Receipt Date: 20091028
  Transmission Date: 20100525
  Serious: Yes (Other)
  Sender: FDA-Public Use
  Company Number: CH-AMGEN-US368741

PATIENT
  Age: 37 Year
  Sex: Female

DRUGS (1)
  1. ENBREL [Suspect]
     Indication: RHEUMATOID ARTHRITIS
     Route: 058
     Dates: start: 20090601, end: 20091001

REACTIONS (5)
  - AUTOANTIBODY POSITIVE [None]
  - FIBRIN D DIMER INCREASED [None]
  - GRANULOCYTOSIS [None]
  - LEUKOCYTOSIS [None]
  - LYMPHOPENIA [None]
